FAERS Safety Report 11809765 (Version 1)
Quarter: 2015Q4

REPORT INFORMATION
  Report Type: Spontaneous
  Country: US (occurrence: US)
  Receive Date: 20151208
  Receipt Date: 20151208
  Transmission Date: 20160305
  Serious: Yes (Other)
  Sender: FDA-Public Use
  Company Number: US-AMGEN-USASP2015129208

PATIENT
  Age: 76 Year
  Sex: Female

DRUGS (2)
  1. ENBREL [Suspect]
     Active Substance: ETANERCEPT
     Indication: RHEUMATOID ARTHRITIS
     Dosage: UNK UNK, QWK
     Route: 065
  2. METHOTREXATE [Concomitant]
     Active Substance: METHOTREXATE

REACTIONS (11)
  - Pain [Unknown]
  - Fall [Unknown]
  - Knee arthroplasty [Unknown]
  - Drug ineffective [Unknown]
  - Hand deformity [Unknown]
  - Mobility decreased [Unknown]
  - Confusional state [Unknown]
  - Blood test abnormal [Unknown]
  - Contusion [Unknown]
  - Thyroid neoplasm [Unknown]
  - Pulmonary mass [Unknown]

NARRATIVE: CASE EVENT DATE: 2008
